FAERS Safety Report 13033013 (Version 2)
Quarter: 2017Q1

REPORT INFORMATION
  Report Type: Spontaneous
  Country: JP (occurrence: JP)
  Receive Date: 20161215
  Receipt Date: 20170302
  Transmission Date: 20170428
  Serious: Yes (Other)
  Sender: FDA-Public Use
  Company Number: JP-AMGEN-JPNSP2016176762

PATIENT
  Age: 88 Year
  Sex: Female

DRUGS (3)
  1. DENOTAS [Concomitant]
     Active Substance: CALCIUM CARBONATE\CHOLECALCIFEROL\MAGNESIUM CARBONATE
     Indication: HYPOCALCAEMIA
     Dosage: 2 UNK, QD
     Route: 048
     Dates: start: 20151028
  2. PRALIA [Suspect]
     Active Substance: DENOSUMAB
     Indication: PRODUCT USED FOR UNKNOWN INDICATION
     Dosage: 60 MG, Q6MO
     Route: 058
     Dates: start: 20151028, end: 20161208
  3. ARTZ [Concomitant]
     Active Substance: HYALURONATE SODIUM
     Indication: ARTHRALGIA
     Dosage: 2.5 ML, QWK
     Route: 014

REACTIONS (1)
  - Osteonecrosis of jaw [Unknown]
